FAERS Safety Report 7945093-X (Version None)
Quarter: 2011Q4

REPORT INFORMATION
  Report Type: 
  Country: None (occurrence: None)
  Receive Date: 20111129
  Receipt Date: 20111116
  Transmission Date: 20120403
  Serious: No
  Sender: FDA-Public Use
  Company Number: US-ENDO PHARMACEUTICALS INC.-PROP20110182

PATIENT
  Sex: Male

DRUGS (1)
  1. PROPOXYPHENE NAPSYLATE W/ ACETAMINOPHEN [Suspect]
     Indication: PAIN
     Dosage: UNKNOWN
     Route: 048
     Dates: start: 20050808, end: 20101210

REACTIONS (5)
  - SURGERY [None]
  - MOVEMENT DISORDER [None]
  - HEART RATE IRREGULAR [None]
  - CEREBROVASCULAR ACCIDENT [None]
  - VASCULAR GRAFT [None]
